FAERS Safety Report 9584467 (Version 1)
Quarter: 2013Q4

REPORT INFORMATION
  Report Type: Spontaneous
  Country: US (occurrence: US)
  Receive Date: 20131002
  Receipt Date: 20131002
  Transmission Date: 20140711
  Serious: No
  Sender: FDA-Public Use
  Company Number: US-AMGEN-USASP2013054255

PATIENT
  Age: 51 Year
  Sex: Male
  Weight: 74.83 kg

DRUGS (4)
  1. ENBREL [Suspect]
     Indication: PSORIATIC ARTHROPATHY
     Dosage: 50 MG, ONCE A WEEK
     Route: 058
     Dates: start: 200509
  2. HUMIRA [Concomitant]
     Dosage: UNK
     Dates: start: 201304
  3. METHOTREXATE [Concomitant]
     Dosage: 12.5 MG, UNK
  4. CELEBREX [Concomitant]
     Dosage: 50 MG, UNK

REACTIONS (1)
  - Therapeutic response decreased [Unknown]
